FAERS Safety Report 7523388-1 (Version None)
Quarter: 2011Q2

REPORT INFORMATION
  Report Type: 
  Country: None (occurrence: None)
  Receive Date: 20110603
  Receipt Date: 20110526
  Transmission Date: 20111010
  Serious: Yes (Hospitalization)
  Sender: FDA-Public Use
  Company Number: B0722955A

PATIENT
  Age: 81 Year
  Sex: Male

DRUGS (6)
  1. URIEF [Concomitant]
     Route: 048
  2. WARFARIN SODIUM [Concomitant]
     Dosage: 2.25MG PER DAY
     Route: 048
  3. OLMESARTAN MEDOXOMIL [Concomitant]
     Dosage: 20MG PER DAY
     Route: 048
  4. BISOPROLOL FUMARATE [Concomitant]
     Dosage: 1.25MG PER DAY
     Route: 048
  5. EVIPROSTAT [Concomitant]
     Route: 048
  6. DUTASTERIDE [Suspect]
     Indication: BENIGN PROSTATIC HYPERPLASIA
     Dosage: .5MG PER DAY
     Route: 048
     Dates: start: 20100520

REACTIONS (2)
  - HEPATIC FUNCTION ABNORMAL [None]
  - JAUNDICE [None]
